FAERS Safety Report 8423663 (Version 2)
Quarter: 2013Q1

REPORT INFORMATION
  Report Type: Spontaneous
  Country: US (occurrence: US)
  Receive Date: 20120224
  Receipt Date: 20130206
  Transmission Date: 20140127
  Serious: No
  Sender: FDA-Public Use
  Company Number: US-PFIZER INC-2012044919

PATIENT
  Age: 11 Year
  Sex: Male
  Weight: 28.12 kg

DRUGS (8)
  1. GENOTROPIN [Suspect]
     Indication: GROWTH HORMONE DEFICIENCY
     Dosage: 12 MG, 1X/DAY
     Route: 058
     Dates: start: 201111
  2. GENOTROPIN [Suspect]
     Dosage: UNK, 1X/DAY
     Dates: start: 2012
  3. PROAIR HFA [Concomitant]
     Indication: ASTHMA
     Dosage: UNK
  4. FLUTICASONE [Concomitant]
     Indication: ASTHMA
     Dosage: UNK
     Route: 045
  5. ALBUTEROL [Concomitant]
     Indication: ASTHMA
     Dosage: UNK
  6. PEPCID [Concomitant]
     Indication: GASTROOESOPHAGEAL REFLUX DISEASE
     Dosage: UNK
  7. SINGULAIR [Concomitant]
     Indication: SINUS DISORDER
     Dosage: UNK
  8. CETIRIZINE [Concomitant]
     Indication: SINUS DISORDER
     Dosage: UNK

REACTIONS (2)
  - Rash [Recovered/Resolved]
  - Nausea [Unknown]
